FAERS Safety Report 9918215 (Version 1)
Quarter: 2014Q1

REPORT INFORMATION
  Report Type: Report from Study
  Country: US (occurrence: US)
  Receive Date: 20140223
  Receipt Date: 20140223
  Transmission Date: 20141002
  Serious: Yes (Other)
  Sender: FDA-Public Use
  Company Number: US-ROCHE-1336333

PATIENT
  Sex: Male

DRUGS (9)
  1. LUCENTIS [Suspect]
     Indication: DIABETIC RETINAL OEDEMA
     Route: 050
  2. LUCENTIS [Suspect]
     Indication: DIABETIC RETINOPATHY
  3. LUCENTIS [Suspect]
     Indication: DIABETIC EYE DISEASE
  4. AVASTIN [Suspect]
     Indication: DIABETIC RETINAL OEDEMA
     Dosage: OD
     Route: 050
  5. AVASTIN [Suspect]
     Indication: DIABETIC RETINOPATHY
  6. AVASTIN [Suspect]
     Indication: DIABETIC EYE DISEASE
  7. CIPRO [Concomitant]
     Dosage: OD
     Route: 047
  8. VIGAMOX [Concomitant]
     Dosage: OU X 7 DAYS AFTER EACH INTRAVITREAL INJECTION
     Route: 047
  9. BEPREVE [Concomitant]
     Dosage: AFFECTED EYE(S)
     Route: 047

REACTIONS (3)
  - Eye discharge [Unknown]
  - Visual acuity reduced transiently [Unknown]
  - Cataract [Unknown]
